FAERS Safety Report 6417496-6 (Version None)
Quarter: 2009Q4

REPORT INFORMATION
  Report Type: 
  Country: None (occurrence: None)
  Receive Date: 20091026
  Receipt Date: 20091013
  Transmission Date: 20100525
  Serious: Yes (Hospitalization)
  Sender: FDA-Public Use
  Company Number: ADR38032009

PATIENT
  Age: 49 Year
  Sex: Male

DRUGS (3)
  1. SIMVASTATIN [Suspect]
     Dates: start: 20080129, end: 20080220
  2. DIHYDROCODEINE BITARTRATE INJ [Concomitant]
  3. LANSOPRAZOLE [Concomitant]

REACTIONS (3)
  - CHOLELITHIASIS [None]
  - CHROMATURIA [None]
  - JAUNDICE [None]
